FAERS Safety Report 8078598-4 (Version None)
Quarter: 2012Q1

REPORT INFORMATION
  Report Type: 
  Country: None (occurrence: None)
  Receive Date: 20120127
  Receipt Date: 20110104
  Transmission Date: 20120608
  Serious: No
  Sender: FDA-Public Use
  Company Number: US-ABBOTT-11P-163-0695017-00

PATIENT
  Age: 45 Year
  Sex: Female

DRUGS (2)
  1. COLAZAL [Concomitant]
     Indication: PRODUCT USED FOR UNKNOWN INDICATION
  2. HUMIRA [Suspect]
     Indication: COLITIS ULCERATIVE
     Dates: start: 20100701

REACTIONS (2)
  - INJECTION SITE HAEMATOMA [None]
  - INJECTION SITE PRURITUS [None]
